FAERS Safety Report 9548636 (Version 2)
Quarter: 2013Q4

REPORT INFORMATION
  Report Type: Report from Study
  Country: IT (occurrence: IT)
  Receive Date: 20130924
  Receipt Date: 20131010
  Transmission Date: 20140711
  Serious: Yes (Hospitalization)
  Sender: FDA-Public Use
  Company Number: IT-ROCHE-1278275

PATIENT
  Age: 40 Year
  Sex: Male
  Weight: 73 kg

DRUGS (2)
  1. PEG-INTERFERON ALFA 2A [Suspect]
     Indication: CHRONIC HEPATITIS B
     Dosage: LAST DOSE PRIOR TO SAE: 11/SEP/2013.
     Route: 058
     Dates: start: 20130529, end: 20130917
  2. BARACLUDE [Concomitant]
     Route: 065
     Dates: start: 20090321

REACTIONS (1)
  - Haemoptysis [Recovered/Resolved with Sequelae]
